FAERS Safety Report 5212901-5 (Version None)
Quarter: 2007Q1

REPORT INFORMATION
  Report Type: 
  Country: None (occurrence: None)
  Receive Date: 20070116
  Receipt Date: 20070104
  Transmission Date: 20070707
  Serious: Yes (Hospitalization)
  Sender: FDA-Public Use
  Company Number: GXKR2007US00525

PATIENT
  Age: 10 Year
  Sex: Male

DRUGS (3)
  1. VINCRISTINE [Suspect]
     Indication: ASTROCYTOMA
     Dosage: 1.5 MG/M2, QW X 8/3 CYCLES, UNK
  2. CARBOPLATIN [Suspect]
     Indication: ASTROCYTOMA
  3. DACTINOMYCIN [Suspect]
     Indication: ASTROCYTOMA
     Dosage: 15UG/KG, QD X 5 DAYS/3 CYCLES, UNK

REACTIONS (8)
  - CONVULSION [None]
  - FUNGAL SEPSIS [None]
  - INAPPROPRIATE ANTIDIURETIC HORMONE SECRETION [None]
  - MYELODYSPLASTIC SYNDROME [None]
  - NEOPLASM PROGRESSION [None]
  - NEUROPATHY PERIPHERAL [None]
  - PYREXIA [None]
  - RESPIRATORY FAILURE [None]
